FAERS Safety Report 21968446 (Version 2)
Quarter: 2023Q1

REPORT INFORMATION
  Report Type: Report from Study
  Country: US (occurrence: None)
  Receive Date: 20230208
  Receipt Date: 20230226
  Transmission Date: 20230418
  Serious: Yes (Death, Other)
  Sender: FDA-Public Use
  Company Number: 2023A031110

PATIENT
  Sex: Male

DRUGS (1)
  1. SYMBICORT [Suspect]
     Active Substance: BUDESONIDE\FORMOTEROL FUMARATE DIHYDRATE
     Dosage: UG/INHAL
     Route: 055

REACTIONS (4)
  - Death [Fatal]
  - COVID-19 [Unknown]
  - Pneumonia [Unknown]
  - Pulmonary thrombosis [Unknown]
